FAERS Safety Report 18529668 (Version 1)
Quarter: 2020Q4

REPORT INFORMATION
  Report Type: Spontaneous
  Country: US (occurrence: US)
  Receive Date: 20201120
  Receipt Date: 20201120
  Transmission Date: 20210114
  Serious: No
  Sender: FDA-Public Use
  Company Number: US-NOVOPROD-727628

PATIENT
  Sex: Female

DRUGS (1)
  1. NOVOLOG [Suspect]
     Active Substance: INSULIN ASPART
     Indication: TYPE 2 DIABETES MELLITUS
     Dosage: STOPPED ON UNKNOWN DATE; RESUMED USING IT ON 4-MAY-2020
     Route: 058
     Dates: start: 2019

REACTIONS (2)
  - Respiratory tract congestion [Unknown]
  - Wheezing [Unknown]
